FAERS Safety Report 18553680 (Version 5)
Quarter: 2021Q2

REPORT INFORMATION
  Report Type: Report from Study
  Country: PA (occurrence: PA)
  Receive Date: 20201127
  Receipt Date: 20210404
  Transmission Date: 20210717
  Serious: Yes (Other)
  Sender: FDA-Public Use
  Company Number: NVSC2020PA296945

PATIENT
  Age: 69 Year
  Sex: Female

DRUGS (12)
  1. KISQALI [Suspect]
     Active Substance: RIBOCICLIB
     Dosage: 600 MG, QD
     Route: 048
     Dates: start: 20201031
  2. ANASTROZOLE. [Suspect]
     Active Substance: ANASTROZOLE
     Dosage: 1 DF, QD
     Route: 065
     Dates: start: 202010
  3. CAL MAG D [Concomitant]
     Indication: PRODUCT USED FOR UNKNOWN INDICATION
     Dosage: UNK
     Route: 065
  4. GABAPENTIN. [Suspect]
     Active Substance: GABAPENTIN
     Indication: PAIN
     Dosage: 2 DF, QD
     Route: 065
     Dates: start: 2009
  5. VERSATIS [Concomitant]
     Active Substance: LIDOCAINE
     Indication: PRODUCT USED FOR UNKNOWN INDICATION
     Dosage: UNK(PATCHES)
     Route: 065
  6. KISQALI [Suspect]
     Active Substance: RIBOCICLIB
     Indication: BREAST CANCER METASTATIC
     Dosage: 600 MG, QD
     Route: 048
     Dates: start: 20201027
  7. KISQALI [Suspect]
     Active Substance: RIBOCICLIB
     Dosage: 600 MG, QD
     Route: 065
     Dates: start: 202011
  8. TRAMADOL. [Suspect]
     Active Substance: TRAMADOL
     Indication: PAIN
     Dosage: 2 DF, QD
     Route: 065
     Dates: start: 2009
  9. ANASTROZOLE. [Suspect]
     Active Substance: ANASTROZOLE
     Indication: BREAST CANCER METASTATIC
     Dosage: UNK
     Route: 065
  10. GABAPENTIN. [Suspect]
     Active Substance: GABAPENTIN
     Dosage: 2 DF, QD
     Route: 065
  11. ALPRAZOLAM. [Concomitant]
     Active Substance: ALPRAZOLAM
     Indication: PRODUCT USED FOR UNKNOWN INDICATION
     Dosage: UNK
     Route: 065
  12. KISQALI [Suspect]
     Active Substance: RIBOCICLIB
     Dosage: 600 MG, QD
     Route: 048
     Dates: start: 20201028

REACTIONS (37)
  - Illness [Recovering/Resolving]
  - Hepatic cyst [Unknown]
  - Feeding disorder [Unknown]
  - Arthralgia [Unknown]
  - Tachycardia [Unknown]
  - Dizziness [Unknown]
  - Bone disorder [Unknown]
  - Dactylitis [Recovering/Resolving]
  - Dizziness [Recovered/Resolved]
  - Decreased appetite [Recovered/Resolved]
  - Blood pressure abnormal [Unknown]
  - Breast pain [Unknown]
  - Decreased immune responsiveness [Unknown]
  - Headache [Unknown]
  - Thermal burn [Unknown]
  - Hypersensitivity [Recovering/Resolving]
  - Infective glossitis [Unknown]
  - Constipation [Unknown]
  - Glossodynia [Unknown]
  - Pharyngitis [Unknown]
  - Skin discolouration [Unknown]
  - Skin disorder [Unknown]
  - Dysphonia [Unknown]
  - Metastasis [Unknown]
  - Headache [Recovered/Resolved]
  - Vomiting [Recovered/Resolved]
  - Oropharyngeal pain [Unknown]
  - Angina pectoris [Unknown]
  - Muscle spasms [Recovering/Resolving]
  - Plantar fasciitis [Recovering/Resolving]
  - Insomnia [Recovering/Resolving]
  - Injection site pain [Unknown]
  - Metastases to bone [Unknown]
  - Metastases to spine [Unknown]
  - Nausea [Recovered/Resolved]
  - Gait inability [Recovering/Resolving]
  - Musculoskeletal chest pain [Unknown]

NARRATIVE: CASE EVENT DATE: 20201028
